FAERS Safety Report 8300815-3 (Version None)
Quarter: 2012Q2

REPORT INFORMATION
  Report Type: 
  Country: None (occurrence: None)
  Receive Date: 20120420
  Receipt Date: 20120419
  Transmission Date: 20120825
  Serious: Yes (Death)
  Sender: FDA-Public Use
  Company Number: PHHY2012NL026634

PATIENT
  Sex: Female
  Weight: 69 kg

DRUGS (10)
  1. DIPHANTOINE [Concomitant]
     Dosage: 25 MG, DAILY
  2. ZOLEDRONOC ACID [Suspect]
     Indication: OSTEOPOROSIS
     Dosage: 5 MG/100 ML
     Route: 042
     Dates: start: 20090415
  3. CALCIUM CARBONATE [Concomitant]
     Dosage: 500 MG, UNK
  4. PHENOBARBITAL TAB [Concomitant]
     Dosage: 50 MG, DAILY
  5. ZOLEDRONOC ACID [Suspect]
     Dosage: 5 MG/100 ML
     Route: 042
     Dates: start: 20101007
  6. LISINOPRIL [Concomitant]
     Dosage: 10 MG, DAILY
  7. OMEPRAZOLE [Concomitant]
     Dosage: 20 MG,DAILY
  8. ACETAMINOPHEN [Concomitant]
     Dosage: 1000 MG,DAILY
  9. VITAMIN D [Concomitant]
     Dosage: 800 IE, UNK
  10. ZOLEDRONOC ACID [Suspect]
     Dosage: 5 MG/100 ML
     Route: 042
     Dates: start: 20111018

REACTIONS (1)
  - DEATH [None]
